FAERS Safety Report 14894732 (Version 4)
Quarter: 2020Q3

REPORT INFORMATION
  Report Type: Report from Study
  Country: IL (occurrence: IL)
  Receive Date: 20180515
  Receipt Date: 20181129
  Transmission Date: 20201104
  Serious: Yes (Hospitalization)
  Sender: FDA-Public Use
  Company Number: IL-ROCHE-2119061

PATIENT
  Age: 82 Year
  Sex: Male
  Weight: 82.3 kg

DRUGS (26)
  1. EXFORGE [Concomitant]
     Active Substance: AMLODIPINE BESYLATE\VALSARTAN
     Indication: HYPERTENSION
     Dosage: 1 TABLET EVERY DAY
     Route: 048
     Dates: start: 201801
  2. LIPITOR [Concomitant]
     Active Substance: ATORVASTATIN CALCIUM
     Indication: HYPERLIPIDAEMIA
     Route: 048
  3. COSOPT [Concomitant]
     Active Substance: DORZOLAMIDE HYDROCHLORIDE\TIMOLOL MALEATE
     Indication: PROPHYLAXIS
     Dosage: 1 OTHER UNIT DOSE
     Route: 047
  4. CLEXAN [Concomitant]
     Active Substance: ENOXAPARIN SODIUM
     Indication: PULMONARY EMBOLISM
     Route: 058
     Dates: start: 20180425, end: 20180509
  5. CARTIA (ISRAEL) [Concomitant]
     Indication: CORONARY ARTERY DISEASE
     Route: 048
     Dates: start: 20180508, end: 20180509
  6. BROTIZOLAM [Concomitant]
     Active Substance: BROTIZOLAM
     Indication: INSOMNIA
     Route: 048
     Dates: start: 20180509, end: 20180512
  7. LAXADIN [Concomitant]
     Active Substance: BISACODYL
     Indication: CONSTIPATION
     Route: 048
     Dates: start: 201807
  8. XALACOM [Concomitant]
     Active Substance: LATANOPROST\TIMOLOL MALEATE
     Indication: PATHOLOGIC MYOPIA
     Dosage: 1 OTHER UNIT DOSE
     Route: 047
  9. AEROVANT [Concomitant]
     Indication: DYSPNOEA
     Dosage: 1 UNIT
     Route: 050
     Dates: start: 20180516
  10. SLOW K [Concomitant]
     Active Substance: POTASSIUM CHLORIDE
     Indication: HYPOKALAEMIA
     Route: 048
     Dates: start: 201808
  11. PARAFFIN OIL [Concomitant]
     Indication: CONSTIPATION
     Route: 048
     Dates: start: 20180514
  12. ALECTINIB. [Suspect]
     Active Substance: ALECTINIB
     Indication: NON-SMALL CELL LUNG CANCER
     Dosage: MOST RECENT DOSE PRIOR TO SERIOUS ADVERSE EVENT : 01/MAY/2018
     Route: 048
     Dates: start: 20180417
  13. FOLIC ACID. [Concomitant]
     Active Substance: FOLIC ACID
     Route: 048
     Dates: start: 20180508, end: 20180511
  14. AVILAC [Concomitant]
     Indication: CONSTIPATION
     Route: 048
     Dates: start: 20180508, end: 20180508
  15. FUSID (ISRAEL) [Concomitant]
     Route: 048
     Dates: start: 20180510, end: 20180510
  16. VENOFER [Concomitant]
     Active Substance: IRON SUCROSE
     Indication: ANAEMIA
     Route: 042
     Dates: start: 20180510, end: 20180510
  17. VENOFER [Concomitant]
     Active Substance: IRON SUCROSE
     Route: 042
     Dates: start: 20180511, end: 20180511
  18. ASPIRIN CARDIO [Concomitant]
     Active Substance: ASPIRIN
     Indication: CORONARY ARTERY DISEASE
     Route: 048
     Dates: start: 20180511, end: 20180513
  19. MICROPIRIN [Concomitant]
     Active Substance: ASPIRIN
     Indication: CORONARY ARTERY DISEASE
     Route: 048
     Dates: start: 201607
  20. OXYGEN. [Concomitant]
     Active Substance: OXYGEN
     Indication: DYSPNOEA
     Route: 050
     Dates: start: 201805
  21. VENTOLIN [Concomitant]
     Active Substance: ALBUTEROL SULFATE
     Indication: DYSPNOEA
     Route: 050
     Dates: start: 20180516
  22. NORMALAX (ISRAEL) [Concomitant]
     Indication: CONSTIPATION
     Route: 048
     Dates: start: 2008
  23. ALECTINIB. [Suspect]
     Active Substance: ALECTINIB
     Dosage: DOSE REDUCED ON AN UNSPECIFIED DATE DUE TO SAE (DETAILS UNSPECIFIED)
     Route: 048
  24. OMEPRADEX [Concomitant]
     Active Substance: OMEPRAZOLE
     Indication: DYSPEPSIA
     Route: 048
  25. CLEXAN [Concomitant]
     Active Substance: ENOXAPARIN SODIUM
     Route: 058
     Dates: start: 20180513
  26. FUSID (ISRAEL) [Concomitant]
     Indication: OEDEMA
     Route: 048
     Dates: start: 20180509, end: 20180509

REACTIONS (1)
  - Rhabdomyolysis [Recovered/Resolved]

NARRATIVE: CASE EVENT DATE: 20180501
